FAERS Safety Report 23447502 (Version 2)
Quarter: 2024Q1

REPORT INFORMATION
  Report Type: Spontaneous
  Country: AR (occurrence: AR)
  Receive Date: 20240126
  Receipt Date: 20240207
  Transmission Date: 20240409
  Serious: Yes (Hospitalization, Disabling, Other)
  Sender: FDA-Public Use
  Company Number: AR-002147023-NVSC2024AR017125

PATIENT
  Sex: Male

DRUGS (1)
  1. ENTRESTO [Suspect]
     Active Substance: SACUBITRIL\VALSARTAN
     Indication: Cardiac failure
     Dosage: 100 MG, BID (APPROXIMATELY 5 YEARS AGO)
     Route: 048

REACTIONS (4)
  - Maculopathy [Unknown]
  - Deafness [Unknown]
  - Pneumonia [Recovered/Resolved]
  - Cardiac failure [Unknown]
